FAERS Safety Report 19683899 (Version 1)
Quarter: 2021Q3

REPORT INFORMATION
  Report Type: Spontaneous
  Country: US (occurrence: US)
  Receive Date: 20210811
  Receipt Date: 20210811
  Transmission Date: 20211014
  Serious: No
  Sender: FDA-Public Use
  Company Number: NVSC2021US180159

PATIENT

DRUGS (1)
  1. PATADAY [Suspect]
     Active Substance: OLOPATADINE HYDROCHLORIDE
     Indication: EYE PRURITUS
     Dosage: 2.5 ML, QD
     Route: 065

REACTIONS (5)
  - Product packaging quantity issue [Unknown]
  - Eye irritation [Not Recovered/Not Resolved]
  - Product container issue [Unknown]
  - Drug ineffective [Unknown]
  - Expired product administered [Unknown]
